FAERS Safety Report 5910510-3 (Version None)
Quarter: 2008Q4

REPORT INFORMATION
  Report Type: 
  Country: None (occurrence: None)
  Receive Date: 20081007
  Receipt Date: 20080303
  Transmission Date: 20090506
  Serious: No
  Sender: FDA-Public Use
  Company Number: US-ASTRAZENECA-2008UW03025

PATIENT
  Age: 27735 Day
  Sex: Female

DRUGS (3)
  1. ARIMIDEX [Suspect]
     Indication: BREAST CANCER
     Route: 048
     Dates: start: 20071113, end: 20071114
  2. FEMARA [Concomitant]
     Indication: BREAST CANCER
  3. FEMARA [Concomitant]
     Dosage: RESTART

REACTIONS (1)
  - MYODESOPSIA [None]
